FAERS Safety Report 5962737-2 (Version None)
Quarter: 2008Q4

REPORT INFORMATION
  Report Type: 
  Country: None (occurrence: None)
  Receive Date: 20081120
  Receipt Date: 20081106
  Transmission Date: 20090506
  Serious: Yes (Hospitalization)
  Sender: FDA-Public Use
  Company Number: 9039997-2008-00065

PATIENT
  Age: 72 Year
  Sex: Male
  Weight: 68.0396 kg

DRUGS (5)
  1. LEVULAN [Suspect]
     Indication: ACTINIC KERATOSIS
     Dosage: 20%, ONCE, TOPICAL
     Route: 061
     Dates: start: 20081105
  2. MULTI-VITAMIN [Concomitant]
  3. KCI [Concomitant]
  4. VITAMIN C AND E [Concomitant]
  5. ASPIRIN [Concomitant]

REACTIONS (5)
  - DISCOMFORT [None]
  - ERYTHEMA [None]
  - HYPERTENSION [None]
  - PAIN [None]
  - TRANSIENT ISCHAEMIC ATTACK [None]
